FAERS Safety Report 9440629 (Version 1)
Quarter: 2013Q3

REPORT INFORMATION
  Report Type: Spontaneous
  Country: US (occurrence: US)
  Receive Date: 20130801
  Receipt Date: 20130801
  Transmission Date: 20140515
  Serious: Yes (Hospitalization)
  Sender: FDA-Public Use
  Company Number: USA/USA/13/0033600

PATIENT
  Age: 52 Year
  Sex: Female

DRUGS (5)
  1. FLUCONAZOLE (FLUCONAZOLE) [Suspect]
     Indication: IMMUNE SYSTEM DISORDER
  2. TACROLIMUS (TACROLIMUS) [Suspect]
     Indication: TRANSPLANT REJECTION
  3. VANCOMYCIN (VANCOMYCIN) [Concomitant]
  4. MEROPENEM (MEROPENEM) [Concomitant]
  5. PHENYTOIN (PHENYTOIN) [Suspect]
     Indication: STATUS EPILEPTICUS
     Route: 042

REACTIONS (10)
  - Electrocardiogram ST segment elevation [None]
  - Electrocardiogram QT prolonged [None]
  - Tachycardia [None]
  - Hypoalbuminaemia [None]
  - Renal failure [None]
  - Hepatic failure [None]
  - Electrocardiogram QRS complex prolonged [None]
  - Toxicity to various agents [None]
  - Status epilepticus [None]
  - Drug interaction [None]
